FAERS Safety Report 17965172 (Version 1)
Quarter: 2020Q2

REPORT INFORMATION
  Report Type: Spontaneous
  Country: PH (occurrence: PH)
  Receive Date: 20200630
  Receipt Date: 20200630
  Transmission Date: 20200714
  Serious: Yes (Other)
  Sender: FDA-Public Use
  Company Number: PH-FRESENIUS KABI-FK202006598

PATIENT
  Age: 26 Year
  Sex: Female

DRUGS (3)
  1. NIFEDIPINE. [Suspect]
     Active Substance: NIFEDIPINE
     Indication: PREMATURE LABOUR
     Route: 048
  2. TERBUTALINE INJECTION (MANUFACTURER UNKNOWN) [Suspect]
     Active Substance: TERBUTALINE SULFATE
     Indication: PREMATURE LABOUR
     Route: 065
  3. MAGNESIUM SULFATE (MANUFACTURER UNKNOWN) [Suspect]
     Active Substance: MAGNESIUM SULFATE
     Indication: PREMATURE LABOUR
     Dosage: UNKNOWN
     Route: 050

REACTIONS (2)
  - Pulmonary oedema [Recovered/Resolved]
  - Exposure during pregnancy [Recovered/Resolved]
